FAERS Safety Report 7302254-0 (Version None)
Quarter: 2011Q1

REPORT INFORMATION
  Report Type: 
  Country: None (occurrence: None)
  Receive Date: 20110218
  Receipt Date: 20110217
  Transmission Date: 20110831
  Serious: Yes (Death)
  Sender: FDA-Public Use
  Company Number: ES-CELGENEUS-144-C5013-11022191

PATIENT
  Sex: Male

DRUGS (4)
  1. CC-5013 [Suspect]
     Route: 048
     Dates: end: 20100415
  2. DEXAMETHASONE [Suspect]
     Route: 065
     Dates: end: 20100415
  3. CC-5013 [Suspect]
     Indication: MULTIPLE MYELOMA
     Route: 048
     Dates: start: 20090625
  4. DEXAMETHASONE [Suspect]
     Indication: MULTIPLE MYELOMA
     Route: 065
     Dates: start: 20090625

REACTIONS (1)
  - LUNG ADENOCARCINOMA [None]
